FAERS Safety Report 7861970-2 (Version None)
Quarter: 2011Q4

REPORT INFORMATION
  Report Type: 
  Country: None (occurrence: None)
  Receive Date: 20111027
  Receipt Date: 20101119
  Transmission Date: 20120403
  Serious: Yes (Hospitalization)
  Sender: FDA-Public Use
  Company Number: US-AMGEN-USASP2010005894

PATIENT
  Age: 63 Year
  Sex: Female

DRUGS (3)
  1. SULFASALAZINE [Concomitant]
     Dosage: 1 MG, QD
     Dates: start: 20010101
  2. ARAVA [Concomitant]
     Dosage: 1 MG, QD
     Dates: start: 20020101
  3. ENBREL [Suspect]
     Indication: RHEUMATOID ARTHRITIS
     Route: 058
     Dates: start: 20041101, end: 20071001

REACTIONS (2)
  - STAPHYLOCOCCAL INFECTION [None]
  - RHEUMATOID ARTHRITIS [None]
